FAERS Safety Report 8485192-X (Version None)
Quarter: 2012Q3

REPORT INFORMATION
  Report Type: 
  Country: None (occurrence: None)
  Receive Date: 20120703
  Receipt Date: 20120626
  Transmission Date: 20120928
  Serious: Yes (Other)
  Sender: FDA-Public Use
  Company Number: BR-US-EMD SERONO, INC.-7133660

PATIENT
  Sex: Female

DRUGS (7)
  1. REBIF [Suspect]
     Indication: RELAPSING-REMITTING MULTIPLE SCLEROSIS
     Dates: start: 20110916
  2. CORTICOSTEROIDS [Suspect]
     Indication: PRODUCT USED FOR UNKNOWN INDICATION
     Dates: start: 20110101
  3. MIOSAN [Concomitant]
     Indication: PRODUCT USED FOR UNKNOWN INDICATION
  4. CIZAX [Concomitant]
     Indication: MUSCLE RELAXANT THERAPY
  5. ASPIRIN [Concomitant]
     Indication: OSTEONECROSIS
  6. CLOXAZOLAM [Concomitant]
     Indication: DEPRESSION
  7. FLUOXETINE [Concomitant]
     Indication: ANXIETY

REACTIONS (2)
  - OSTEONECROSIS [None]
  - MUSCULAR WEAKNESS [None]
